FAERS Safety Report 18947920 (Version 2)
Quarter: 2021Q1

REPORT INFORMATION
  Report Type: Spontaneous
  Country: DE (occurrence: DE)
  Receive Date: 20210226
  Receipt Date: 20210318
  Transmission Date: 20210420
  Serious: Yes (Life-Threatening)
  Sender: FDA-Public Use
  Company Number: DE-CHIESI USA, INC.-DE-2021CHI000048

PATIENT

DRUGS (1)
  1. CUROSURF [Suspect]
     Active Substance: PORACTANT ALFA
     Indication: NEONATAL RESPIRATORY DISTRESS
     Dosage: 480 MG, SINGLE
     Route: 007
     Dates: start: 20210202, end: 20210202

REACTIONS (1)
  - Pulmonary haemorrhage neonatal [Recovered/Resolved]

NARRATIVE: CASE EVENT DATE: 20210202
